FAERS Safety Report 24777196 (Version 1)
Quarter: 2024Q4

REPORT INFORMATION
  Report Type: Spontaneous
  Country: US (occurrence: US)
  Receive Date: 20241226
  Receipt Date: 20241226
  Transmission Date: 20250115
  Serious: Yes (Hospitalization)
  Sender: SANOFI AVENTIS
  Company Number: US-SA-2024SA380024

PATIENT
  Age: 4 Year
  Sex: Male
  Weight: 13.64 kg

DRUGS (2)
  1. DUPIXENT [Suspect]
     Active Substance: DUPILUMAB
     Indication: Juvenile idiopathic arthritis
     Dosage: 300 MG Q4W
     Route: 058
  2. DUPIXENT [Suspect]
     Active Substance: DUPILUMAB
     Indication: Dermatitis atopic

REACTIONS (5)
  - Pyrexia [Unknown]
  - Autoinflammatory disease [Unknown]
  - Pruritus [Recovered/Resolved]
  - Rash [Unknown]
  - Product use in unapproved indication [Unknown]
